FAERS Safety Report 6070227-4 (Version None)
Quarter: 2009Q1

REPORT INFORMATION
  Report Type: 
  Country: None (occurrence: None)
  Receive Date: 20090209
  Receipt Date: 20090128
  Transmission Date: 20090719
  Serious: No
  Sender: FDA-Public Use
  Company Number: US-ROCHE-595058

PATIENT
  Sex: Female

DRUGS (2)
  1. ACCUTANE [Suspect]
     Indication: ACNE
     Route: 065
     Dates: end: 20080701
  2. CLARAVIS [Suspect]
     Indication: DRUG USE FOR UNKNOWN INDICATION
     Dosage: ON 5/3/08 PATIENT WAS DISPENSED ISOTRETIOIN 40 MG CAPSULES AND SUBSEQUENTLY BEGAN TREATMENT.
     Route: 065
     Dates: start: 20080305

REACTIONS (2)
  - NO ADVERSE EVENT [None]
  - PREGNANCY [None]
